FAERS Safety Report 5077759-6 (Version None)
Quarter: 2006Q3

REPORT INFORMATION
  Report Type: 
  Country: None (occurrence: None)
  Receive Date: 20060807
  Receipt Date: 20060725
  Transmission Date: 20061208
  Serious: Yes (Hospitalization)
  Sender: FDA-Public Use
  Company Number: US200607004993

PATIENT
  Age: 83 Year
  Sex: Female

DRUGS (2)
  1. FORTEO [Suspect]
     Indication: BONE DENSITY DECREASED
     Dates: start: 20060101
  2. FORTEO [Concomitant]

REACTIONS (6)
  - ATROPHIC VULVOVAGINITIS [None]
  - BACK DISORDER [None]
  - DYSURIA [None]
  - MUSCLE SPASMS [None]
  - PHARMACEUTICAL PRODUCT COMPLAINT [None]
  - RECTOCELE [None]
